FAERS Safety Report 4653703-8 (Version None)
Quarter: 2005Q2

REPORT INFORMATION
  Report Type: 
  Country: None (occurrence: None)
  Receive Date: 20050505
  Receipt Date: 20050426
  Transmission Date: 20051028
  Serious: Yes (Life-Threatening, Other)
  Sender: FDA-Public Use
  Company Number: CA-ABBOTT-05P-028-0298946-00

PATIENT
  Age: 35 Year
  Sex: Male

DRUGS (8)
  1. KALETRA [Suspect]
     Indication: HIV INFECTION
     Route: 048
  2. KALETRA [Suspect]
  3. VENLAFAXINE HCL [Concomitant]
     Indication: DEPRESSION
  4. DAPSONE [Concomitant]
     Indication: DRUG USE FOR UNKNOWN INDICATION
  5. LAMIVUDINE [Concomitant]
     Indication: DRUG USE FOR UNKNOWN INDICATION
  6. LAMIVUDINE [Concomitant]
  7. TENOFOVIR [Concomitant]
     Indication: DRUG USE FOR UNKNOWN INDICATION
  8. TENOFOVIR [Concomitant]

REACTIONS (3)
  - HALLUCINATION [None]
  - PHYSICAL ASSAULT [None]
  - PSYCHOTIC DISORDER [None]
